FAERS Safety Report 12318127 (Version 3)
Quarter: 2016Q2

REPORT INFORMATION
  Report Type: Spontaneous
  Country: None (occurrence: SE)
  Receive Date: 20160429
  Receipt Date: 20160630
  Transmission Date: 20160815
  Serious: Yes (Other)
  Sender: FDA-Public Use
  Company Number: SE-MEDAC PHARMA, INC.-1051197

PATIENT
  Sex: Female

DRUGS (3)
  1. SPIRONOLACTONE. [Concomitant]
     Active Substance: SPIRONOLACTONE
  2. METOJECT [Suspect]
     Active Substance: METHOTREXATE SODIUM
     Route: 058
     Dates: start: 201601, end: 201603
  3. PULMICORT FLEXHALER [Concomitant]
     Active Substance: BUDESONIDE

REACTIONS (9)
  - Pulmonary oedema [Recovering/Resolving]
  - Peripheral swelling [Recovered/Resolved]
  - Gastritis [Recovered/Resolved]
  - Abdominal distension [Recovered/Resolved]
  - Influenza [Recovered/Resolved]
  - Skin swelling [Recovered/Resolved]
  - Cough [Recovered/Resolved]
  - Pulmonary fibrosis [Unknown]
  - Injection site swelling [Recovered/Resolved]
